FAERS Safety Report 6786194-1 (Version None)
Quarter: 2010Q2

REPORT INFORMATION
  Report Type: 
  Country: None (occurrence: None)
  Receive Date: 20100623
  Receipt Date: 20100609
  Transmission Date: 20101027
  Serious: Yes (Other)
  Sender: FDA-Public Use
  Company Number: US-ELI_LILLY_AND_COMPANY-US201006003060

PATIENT
  Sex: Female

DRUGS (10)
  1. EVISTA [Suspect]
     Indication: OSTEOPOROSIS
     Dosage: 60 MG, DAILY (1/D)
  2. FOSAMAX [Concomitant]
     Dosage: UNK, DAILY (1/D)
  3. COUMADIN [Concomitant]
     Dosage: UNK, DAILY (1/D)
  4. CARDIZEM CD [Concomitant]
     Dosage: UNK, DAILY (1/D)
  5. CALCIUM CARBONATE [Concomitant]
     Dosage: 1 D/F, 2/D
  6. CENTRUM SILVER [Concomitant]
     Dosage: UNK, DAILY (1/D)
  7. FISH OIL [Concomitant]
     Dosage: UNK, DAILY (1/D)
  8. VITAMIN E [Concomitant]
     Dosage: UNK, DAILY (1/D)
  9. NIACIN [Concomitant]
     Dosage: UNK, DAILY (1/D)
  10. LORAZEPAM [Concomitant]
     Dosage: UNK, EACH EVENING

REACTIONS (1)
  - ATRIAL FIBRILLATION [None]
